FAERS Safety Report 13741731 (Version 2)
Quarter: 2018Q1

REPORT INFORMATION
  Report Type: Spontaneous
  Country: US (occurrence: US)
  Receive Date: 20170711
  Receipt Date: 20180209
  Transmission Date: 20180508
  Serious: No
  Sender: FDA-Public Use
  Company Number: US-PFIZER INC-2017300531

PATIENT
  Age: 59 Year
  Sex: Male
  Weight: 91.63 kg

DRUGS (3)
  1. XELJANZ [Suspect]
     Active Substance: TOFACITINIB CITRATE
     Dosage: 5 MG, 2X/DAY
     Route: 048
  2. XELJANZ [Suspect]
     Active Substance: TOFACITINIB CITRATE
     Dosage: 5 MG, DAILY (ONCE A DAY)
     Route: 048
     Dates: start: 201710
  3. XELJANZ [Suspect]
     Active Substance: TOFACITINIB CITRATE
     Indication: RHEUMATOID ARTHRITIS
     Dosage: 5 MG, 1X/DAY
     Route: 048

REACTIONS (5)
  - Gait disturbance [Unknown]
  - Intentional product misuse [Unknown]
  - Jaw disorder [Unknown]
  - Feeding disorder [Unknown]
  - Joint swelling [Unknown]
